FAERS Safety Report 24628922 (Version 1)
Quarter: 2024Q4

REPORT INFORMATION
  Report Type: Spontaneous
  Country: US (occurrence: US)
  Receive Date: 20241118
  Receipt Date: 20241118
  Transmission Date: 20250115
  Serious: No
  Sender: AUROBINDO
  Company Number: US-AUROBINDO-AUR-APL-2024-039926

PATIENT
  Age: 49 Year
  Sex: Male
  Weight: 76.65 kg

DRUGS (4)
  1. CLONAZEPAM [Suspect]
     Active Substance: CLONAZEPAM
     Indication: Product used for unknown indication
     Dosage: 1 DOSAGE FORM, TWO TIMES A DAY, AS NEEDED
     Route: 065
  2. CLONAZEPAM [Suspect]
     Active Substance: CLONAZEPAM
     Dosage: UNK
     Route: 065
  3. MIDAZOLAM [Concomitant]
     Active Substance: MIDAZOLAM
     Indication: Blood pressure measurement
     Dosage: UNK
     Route: 065
  4. DIAZEPIN [Concomitant]
     Indication: Product used for unknown indication
     Dosage: UNK
     Route: 065

REACTIONS (6)
  - Illness [Unknown]
  - Nausea [Unknown]
  - Withdrawal syndrome [Unknown]
  - Drug ineffective [Unknown]
  - Product formulation issue [Unknown]
  - Therapy cessation [Unknown]
